FAERS Safety Report 24716720 (Version 2)
Quarter: 2024Q4

REPORT INFORMATION
  Report Type: Spontaneous
  Country: US (occurrence: US)
  Receive Date: 20241210
  Receipt Date: 20241210
  Transmission Date: 20250115
  Serious: Yes (Hospitalization)
  Sender: ROCHE
  Company Number: US-ROCHE-10000150879

PATIENT
  Age: 62 Year
  Sex: Female
  Weight: 53.52 kg

DRUGS (1)
  1. TNKASE [Suspect]
     Active Substance: TENECTEPLASE
     Indication: Cerebrovascular accident
     Route: 065
     Dates: start: 20241126, end: 20241126

REACTIONS (8)
  - Cerebrovascular accident [Recovered/Resolved]
  - Sensory loss [Not Recovered/Not Resolved]
  - Malaise [Unknown]
  - Flushing [Unknown]
  - Loss of consciousness [Unknown]
  - Brain fog [Unknown]
  - Off label use [Unknown]
  - Cerebral haemorrhage [Unknown]

NARRATIVE: CASE EVENT DATE: 20241126
